FAERS Safety Report 14343008 (Version 1)
Quarter: 2017Q4

REPORT INFORMATION
  Report Type: Spontaneous
  Country: US (occurrence: US)
  Receive Date: 20171230
  Receipt Date: 20171230
  Transmission Date: 20180321
  Serious: Yes (Other)
  Sender: FDA-Public Use
  Company Number: None

PATIENT
  Age: 72 Year
  Sex: Female
  Weight: 46.8 kg

DRUGS (12)
  1. CALSIUM [Concomitant]
  2. VITAMIN D3 [Concomitant]
     Active Substance: CHOLECALCIFEROL
  3. NEUPRO [Suspect]
     Active Substance: ROTIGOTINE
     Indication: PARKINSONISM
     Dosage: QUANTITY:1 PATCH(ES);?
     Route: 062
     Dates: start: 20170820, end: 20171230
  4. POTASSIUM [Concomitant]
     Active Substance: POTASSIUM
  5. COQ10 [Concomitant]
     Active Substance: UBIDECARENONE
  6. I-TYROSINE [Concomitant]
  7. VITAMIN A AND D [Concomitant]
     Active Substance: LANOLIN\PETROLATUM
  8. VITAMIN C [Concomitant]
     Active Substance: ASCORBIC ACID
  9. ZINC. [Concomitant]
     Active Substance: ZINC
  10. OMEGA 3GLUTATHIONE [Concomitant]
  11. VITAMIN B12 [Concomitant]
     Active Substance: CYANOCOBALAMIN
  12. MAGNESIUM [Concomitant]
     Active Substance: MAGNESIUM

REACTIONS (2)
  - Alopecia [None]
  - Pain of skin [None]

NARRATIVE: CASE EVENT DATE: 20170821
